FAERS Safety Report 9973171 (Version 2)
Quarter: 2014Q1

REPORT INFORMATION
  Report Type: Report from Study
  Country: US (occurrence: US)
  Receive Date: 20140306
  Receipt Date: 20140306
  Transmission Date: 20141002
  Serious: No
  Sender: FDA-Public Use
  Company Number: US-ABBVIE-13P-163-1072423-00

PATIENT
  Age: 48 Year
  Sex: Male
  Weight: 69.01 kg

DRUGS (6)
  1. HUMIRA [Suspect]
     Indication: PSORIASIS
     Dates: start: 20130320
  2. CIPRO [Concomitant]
     Indication: COLITIS ULCERATIVE
  3. PROGRAF [Concomitant]
     Indication: LIVER TRANSPLANT
  4. LOMOTIL [Concomitant]
     Indication: COLITIS ULCERATIVE
  5. URSODIOL [Concomitant]
     Indication: LIVER TRANSPLANT
  6. VITAMINS NOS [Concomitant]
     Indication: VITAMIN SUPPLEMENTATION

REACTIONS (5)
  - Intestinal ulcer [Not Recovered/Not Resolved]
  - Hypoaesthesia [Not Recovered/Not Resolved]
  - Hypoaesthesia [Recovered/Resolved]
  - Hypoaesthesia [Recovered/Resolved]
  - Inflammation [Not Recovered/Not Resolved]
